FAERS Safety Report 7507835-7 (Version None)
Quarter: 2011Q2

REPORT INFORMATION
  Report Type: 
  Country: None (occurrence: None)
  Receive Date: 20110527
  Receipt Date: 20110520
  Transmission Date: 20111010
  Serious: No
  Sender: FDA-Public Use
  Company Number: US-BIOGENIDEC-2011BI019252

PATIENT
  Age: 50 Year
  Sex: Female

DRUGS (1)
  1. TYSABRI [Suspect]
     Indication: MULTIPLE SCLEROSIS
     Route: 042
     Dates: start: 20070813

REACTIONS (13)
  - MUSCLE TIGHTNESS [None]
  - BALANCE DISORDER [None]
  - FATIGUE [None]
  - PAIN IN EXTREMITY [None]
  - ARTHRALGIA [None]
  - ASTHENIA [None]
  - HERPES ZOSTER [None]
  - MULTIPLE SCLEROSIS RELAPSE [None]
  - MIGRAINE [None]
  - PAIN [None]
  - MYALGIA [None]
  - BLADDER DISORDER [None]
  - HEADACHE [None]
